FAERS Safety Report 25956478 (Version 1)
Quarter: 2025Q4

REPORT INFORMATION
  Report Type: Spontaneous
  Country: GB (occurrence: None)
  Receive Date: 20251024
  Receipt Date: 20251024
  Transmission Date: 20260117
  Serious: Yes (Hospitalization, Other)
  Sender: ORION
  Company Number: None

PATIENT
  Age: 70 Year
  Sex: Female

DRUGS (6)
  1. METHOTREXATE [Suspect]
     Active Substance: METHOTREXATE
     Indication: Product used for unknown indication
     Dosage: STRENGTH: 2.5 MG, 2.5 MG TAKE FIVE TABLETS ONCE A WEEK ON A MONDAY - STOPPED PRIOR TO ADMISSION (AKI
  2. INDAPAMIDE [Concomitant]
     Active Substance: INDAPAMIDE
  3. IRBESARTAN [Concomitant]
     Active Substance: IRBESARTAN
  4. FOLIC ACID [Concomitant]
     Active Substance: FOLIC ACID
     Dosage: TAKE ONE TABLET EVERY MORNING EXCEPT ON MONDAYS. THIS IS ONE OF TWO CONTAINERS OF THE SAME MEDICINE.
  5. ATORVASTATIN [Concomitant]
     Active Substance: ATORVASTATIN
  6. ATORVASTATIN [Concomitant]
     Active Substance: ATORVASTATIN

REACTIONS (2)
  - Acute kidney injury [Recovered/Resolved]
  - Blood disorder [Recovered/Resolved]
